FAERS Safety Report 11685442 (Version 1)
Quarter: 2015Q4

REPORT INFORMATION
  Report Type: Spontaneous
  Country: US (occurrence: None)
  Receive Date: 20151029
  Receipt Date: 20151029
  Transmission Date: 20160304
  Serious: Yes (Other)
  Sender: FDA-Public Use
  Company Number: None

PATIENT
  Age: 56 Year
  Sex: Male

DRUGS (1)
  1. SUTENT [Suspect]
     Active Substance: SUNITINIB MALATE
     Indication: MALIGNANT CONNECTIVE TISSUE NEOPLASM
     Route: 048
     Dates: start: 20151007

REACTIONS (5)
  - Pallor [None]
  - Rhinorrhoea [None]
  - Lacrimation increased [None]
  - Diarrhoea [None]
  - Blood test abnormal [None]

NARRATIVE: CASE EVENT DATE: 201510
